FAERS Safety Report 10041231 (Version 1)
Quarter: 2014Q1

REPORT INFORMATION
  Report Type: Spontaneous
  Country: MY (occurrence: MY)
  Receive Date: 20140327
  Receipt Date: 20140327
  Transmission Date: 20141002
  Serious: Yes (Death)
  Sender: FDA-Public Use
  Company Number: MY-GE HEALTHCARE MEDICAL DIAGNOSTICS-OMPQ-PR-1403S-0308

PATIENT
  Age: 52 Year
  Sex: Female
  Weight: 72 kg

DRUGS (7)
  1. OMNIPAQUE [Suspect]
     Indication: PULMONARY EMBOLISM
     Route: 042
     Dates: start: 20140221, end: 20140221
  2. OMNIPAQUE [Suspect]
     Indication: DIAGNOSTIC PROCEDURE
  3. FUROSEMIDE [Concomitant]
     Route: 042
  4. SLOW K [Concomitant]
  5. SIMVASTATIN [Concomitant]
  6. CARDIPRIN [Concomitant]
  7. NEB COMBIVENT [Concomitant]

REACTIONS (3)
  - Cardio-respiratory arrest [Fatal]
  - Cardiac failure congestive [Fatal]
  - Anaphylactic shock [Fatal]
